FAERS Safety Report 9198272 (Version 2)
Quarter: 2013Q2

REPORT INFORMATION
  Report Type: Spontaneous
  Country: BR (occurrence: BR)
  Receive Date: 20130329
  Receipt Date: 20130425
  Transmission Date: 20140414
  Serious: Yes (Hospitalization, Other)
  Sender: FDA-Public Use
  Company Number: BR-BIOGENIDEC-2013BI029754

PATIENT
  Age: 29 Year
  Sex: Female
  Weight: 73 kg

DRUGS (4)
  1. AVONEX [Suspect]
     Indication: MULTIPLE SCLEROSIS
     Route: 030
     Dates: start: 201108, end: 201206
  2. AVONEX [Suspect]
     Indication: MULTIPLE SCLEROSIS
     Route: 030
     Dates: start: 20130415
  3. METHYLDOPA [Concomitant]
  4. VITAMIN COMPLEX [Concomitant]
     Indication: PREGNANCY
     Route: 048
     Dates: start: 201207

REACTIONS (1)
  - Gestational hypertension [Recovered/Resolved]
